FAERS Safety Report 22151607 (Version 2)
Quarter: 2023Q2

REPORT INFORMATION
  Report Type: Spontaneous
  Country: US (occurrence: US)
  Receive Date: 20230329
  Receipt Date: 20230428
  Transmission Date: 20230722
  Serious: Yes (Other)
  Sender: FDA-Public Use
  Company Number: US-PFIZER INC-PV202300054464

PATIENT
  Age: 68 Year
  Sex: Female

DRUGS (1)
  1. ESTRING [Suspect]
     Active Substance: ESTRADIOL
     Indication: Urinary tract infection
     Dosage: UNK

REACTIONS (6)
  - Vulvovaginal discomfort [Unknown]
  - Urethritis noninfective [Unknown]
  - Urethral pain [Unknown]
  - Device malfunction [Unknown]
  - Drug effective for unapproved indication [Unknown]
  - Off label use [Unknown]
